FAERS Safety Report 4924984-8 (Version None)
Quarter: 2006Q1

REPORT INFORMATION
  Report Type: 
  Country: None (occurrence: None)
  Receive Date: 20060222
  Receipt Date: 20060213
  Transmission Date: 20060701
  Serious: No
  Sender: FDA-Public Use
  Company Number: 06H-161-0305194-00

PATIENT
  Age: 41 Week
  Sex: Female
  Weight: 3.3 kg

DRUGS (1)
  1. LIDOCAINE HCL [Suspect]
     Dosage: 4 ML, TRANSPLACENTAL
     Route: 064

REACTIONS (3)
  - BRADYCARDIA FOETAL [None]
  - CAESAREAN SECTION [None]
  - DRUG EXPOSURE DURING PREGNANCY [None]
